FAERS Safety Report 15721739 (Version 1)
Quarter: 2018Q4

REPORT INFORMATION
  Report Type: Spontaneous
  Country: US (occurrence: US)
  Receive Date: 20181214
  Receipt Date: 20181214
  Transmission Date: 20190205
  Serious: No
  Sender: FDA-Public Use
  Company Number: US-DRREDDYS-USA/USA/17/0094748

PATIENT
  Age: 54 Year
  Sex: Male
  Weight: 82 kg

DRUGS (1)
  1. NICOTINE. [Suspect]
     Active Substance: NICOTINE
     Indication: SMOKING CESSATION THERAPY
     Route: 062
     Dates: start: 20171120, end: 20171121

REACTIONS (2)
  - Product adhesion issue [Unknown]
  - Nicotine dependence [Unknown]
